FAERS Safety Report 4346141-9 (Version None)
Quarter: 2004Q2

REPORT INFORMATION
  Report Type: 
  Country: None (occurrence: None)
  Receive Date: 20040421
  Receipt Date: 20040405
  Transmission Date: 20050107
  Serious: Yes (Death, Hospitalization)
  Sender: FDA-Public Use
  Company Number: 701469

PATIENT
  Age: 46 Year
  Sex: Male

DRUGS (2)
  1. AMEVIVE [Suspect]
     Indication: PSORIASIS
     Dosage: 15 MG QW IM
     Route: 030
     Dates: start: 20031201, end: 20031223
  2. METHOTREXATE [Concomitant]

REACTIONS (2)
  - RESPIRATORY DISTRESS [None]
  - RESPIRATORY TRACT INFECTION [None]
